FAERS Safety Report 8300495 (Version 2)
Quarter: 2012Q4

REPORT INFORMATION
  Report Type: 
  Country: US (occurrence: US)
  Receive Date: 20111219
  Receipt Date: 20121026
  Transmission Date: 20130627
  Serious: No
  Sender: FDA-Public Use
  Company Number: US-ASTRAZENECA-2011SE55870

PATIENT
  Age: 64 Year
  Sex: Male

DRUGS (1)
  1. ROSUVASTATIN [Suspect]
     Route: 048

REACTIONS (2)
  - Myalgia [Unknown]
  - Drug ineffective [Unknown]
